FAERS Safety Report 22519196 (Version 1)
Quarter: 2023Q2

REPORT INFORMATION
  Report Type: Other
  Country: None (occurrence: IR)
  Receive Date: 20230605
  Receipt Date: 20230605
  Transmission Date: 20230721
  Serious: Yes (Hospitalization, Other)
  Sender: FDA-Public Use
  Company Number: IR-Spectra Medical Devices, LLC-2142323

PATIENT
  Age: 25 Year
  Sex: Male

DRUGS (3)
  1. LIDOCAINE HYDROCHLORIDE [Suspect]
     Active Substance: LIDOCAINE HYDROCHLORIDE
     Indication: Genital pain
     Route: 065
  2. BENZOCAINE [Suspect]
     Active Substance: BENZOCAINE
     Route: 065
  3. PODOPHYLLUM RESIN [Concomitant]
     Active Substance: PODOPHYLLUM RESIN
     Route: 065

REACTIONS (3)
  - Haemolysis [Recovered/Resolved]
  - Methaemoglobinaemia [Recovered/Resolved]
  - Overdose [Unknown]
